FAERS Safety Report 5334899-1 (Version None)
Quarter: 2007Q2

REPORT INFORMATION
  Report Type: 
  Country: None (occurrence: None)
  Receive Date: 20070525
  Receipt Date: 20070521
  Transmission Date: 20071010
  Serious: Yes (Hospitalization)
  Sender: FDA-Public Use
  Company Number: CHWYE690621MAY07

PATIENT
  Age: 51 Year
  Sex: Male
  Weight: 88 kg

DRUGS (6)
  1. EFFEXOR [Suspect]
     Indication: DEPRESSION
     Route: 048
  2. IMOVANE [Concomitant]
     Route: 048
     Dates: start: 20070305
  3. ZYPREXA [Interacting]
     Route: 048
     Dates: start: 20060817, end: 20061001
  4. ZYPREXA [Interacting]
     Route: 048
     Dates: start: 20061001, end: 20061019
  5. ZYPREXA [Interacting]
     Route: 048
     Dates: start: 20061020, end: 20070304
  6. ZYPREXA [Interacting]
     Route: 048
     Dates: start: 20070305, end: 20070326

REACTIONS (4)
  - ALANINE AMINOTRANSFERASE INCREASED [None]
  - DRUG INTERACTION [None]
  - HYPERLIPIDAEMIA [None]
  - METABOLIC SYNDROME [None]
